FAERS Safety Report 9555361 (Version 1)
Quarter: 2013Q3

REPORT INFORMATION
  Report Type: Spontaneous
  Country: US (occurrence: None)
  Receive Date: 20130816
  Receipt Date: 20130816
  Transmission Date: 20140515
  Serious: No
  Sender: FDA-Public Use
  Company Number: US-011941

PATIENT
  Age: 70 Year
  Sex: Female
  Weight: 58.97 kg

DRUGS (9)
  1. PICO-SALAX [Suspect]
     Indication: BOWEL PREPARATION
     Dosage: 6 PM FIRST PACKET; 5:30 AM SECOND PACKET
     Dates: start: 20130529, end: 20130530
  2. DIOVAN [Concomitant]
  3. LOPRESSOR [Concomitant]
  4. SIMVASTATIN [Concomitant]
  5. CENTRUM SILVER [Concomitant]
  6. ASPIRIN [Concomitant]
  7. BAYER CITRACAL VITAMIN D [Concomitant]
  8. CLARITIN /00917501/ [Concomitant]
  9. RECLAST [Concomitant]

REACTIONS (5)
  - Syncope [None]
  - Insomnia [None]
  - Asthenia [None]
  - Fatigue [None]
  - Headache [None]
